FAERS Safety Report 4289439-5 (Version None)
Quarter: 2004Q1

REPORT INFORMATION
  Report Type: 
  Country: None (occurrence: None)
  Receive Date: 20040203
  Receipt Date: 20030825
  Transmission Date: 20041129
  Serious: Yes (Hospitalization, Other)
  Sender: FDA-Public Use
  Company Number: 200322846BWH

PATIENT
  Age: 68 Year
  Sex: Male
  Weight: 83.4619 kg

DRUGS (5)
  1. AVELOX [Suspect]
     Indication: BRONCHITIS
     Dosage: 400 MG, TOTAL DAILY, ORAL
     Route: 048
     Dates: start: 20030728, end: 20030809
  2. AVELOX [Suspect]
     Indication: SINUSITIS
     Dosage: 400 MG, TOTAL DAILY, ORAL
     Route: 048
     Dates: start: 20030728, end: 20030809
  3. ASPIRIN [Concomitant]
  4. HUMALOG MIX 75/25 [Concomitant]
  5. LANTUS [Concomitant]

REACTIONS (1)
  - TENDON RUPTURE [None]
